FAERS Safety Report 6484792-6 (Version None)
Quarter: 2009Q4

REPORT INFORMATION
  Report Type: 
  Country: None (occurrence: None)
  Receive Date: 20091209
  Receipt Date: 20081223
  Transmission Date: 20100525
  Serious: No
  Sender: FDA-Public Use
  Company Number: A0761668A

PATIENT
  Age: 51 Year
  Sex: Female
  Weight: 49.1 kg

DRUGS (5)
  1. AVANDAMET [Suspect]
     Dosage: 1TAB TWICE PER DAY
     Route: 048
     Dates: start: 20081125
  2. LIPITOR [Concomitant]
  3. METOPROLOL [Concomitant]
  4. HORMONE REPLACEMENT THERAPY [Concomitant]
  5. LANTUS [Concomitant]

REACTIONS (2)
  - SWELLING [None]
  - WEIGHT INCREASED [None]
